FAERS Safety Report 9178812 (Version 2)
Quarter: 2013Q2

REPORT INFORMATION
  Report Type: Spontaneous
  Country: US (occurrence: US)
  Receive Date: 20130321
  Receipt Date: 20130408
  Transmission Date: 20140414
  Serious: No
  Sender: FDA-Public Use
  Company Number: US-PFIZER INC-2013094269

PATIENT
  Sex: Male

DRUGS (2)
  1. NEURONTIN [Suspect]
     Indication: NEUROPATHY PERIPHERAL
     Dosage: UNK, 2X/DAY
     Dates: start: 201302, end: 201303
  2. NEURONTIN [Suspect]
     Indication: PAIN IN EXTREMITY

REACTIONS (2)
  - Depression [Unknown]
  - Dizziness [Unknown]
